FAERS Safety Report 8250282-3 (Version None)
Quarter: 2012Q2

REPORT INFORMATION
  Report Type: 
  Country: None (occurrence: None)
  Receive Date: 20120402
  Receipt Date: 20120326
  Transmission Date: 20120825
  Serious: Yes (Hospitalization, Disabling, Other)
  Sender: FDA-Public Use
  Company Number: DE-BAYER-201043680GPV

PATIENT
  Age: 43 Year
  Sex: Female
  Weight: 80 kg

DRUGS (1)
  1. DROSPIRENONE AND ETHINYL ESTRADIOL [Suspect]
     Indication: ORAL CONTRACEPTION
     Dosage: 1 DF (DAILY DOSE), QD, ORAL
     Route: 048
     Dates: start: 20060101

REACTIONS (16)
  - CEREBROVASCULAR ACCIDENT [None]
  - DEEP VEIN THROMBOSIS [None]
  - MIGRAINE [None]
  - MOBILITY DECREASED [None]
  - ENDOMETRIOSIS [None]
  - MONOPARESIS [None]
  - GAIT DISTURBANCE [None]
  - FACIAL PARESIS [None]
  - HAEMORRHAGIC TRANSFORMATION STROKE [None]
  - CHOLELITHIASIS [None]
  - OVARIAN CYST [None]
  - PULMONARY EMBOLISM [None]
  - PELVIC VENOUS THROMBOSIS [None]
  - HAEMANGIOMA OF LIVER [None]
  - BRAIN STEM INFARCTION [None]
  - PUTAMEN HAEMORRHAGE [None]
